FAERS Safety Report 7457446-7 (Version None)
Quarter: 2011Q2

REPORT INFORMATION
  Report Type: 
  Country: None (occurrence: None)
  Receive Date: 20110504
  Receipt Date: 20110420
  Transmission Date: 20111010
  Serious: No
  Sender: FDA-Public Use
  Company Number: US-B.I. PHARMACEUTICALS,INC./RIDGEFIELD-2011-BP-11354BP

PATIENT
  Sex: Female

DRUGS (9)
  1. UNITHROID [Concomitant]
     Indication: HYPOTHYROIDISM
     Dosage: 25 MG
  2. PRADAXA [Suspect]
     Indication: ATRIAL FIBRILLATION
     Dosage: 300 MG
     Route: 048
     Dates: start: 20110411, end: 20110418
  3. ZOCOR [Concomitant]
     Indication: BLOOD CHOLESTEROL INCREASED
     Dosage: 20 MG
  4. BONIVA [Concomitant]
     Indication: OSTEOPOROSIS
     Dosage: 150 MG
  5. DIOVAN [Concomitant]
     Indication: HYPERTENSION
     Dosage: 80 MG
  6. METOPROLOL SUCCINATE [Concomitant]
     Indication: HYPERTENSION
     Dosage: 25 MG
  7. FUROSEMIDE [Concomitant]
     Indication: HYPERTENSION
     Dosage: 10 MG
  8. ZANTAC [Concomitant]
     Indication: PROPHYLAXIS
     Dosage: 150 MG
  9. KEPPRA [Concomitant]
     Indication: EPILEPSY
     Dosage: 750 MG

REACTIONS (2)
  - URTICARIA [None]
  - DIZZINESS [None]
